FAERS Safety Report 5429592-0 (Version None)
Quarter: 2007Q3

REPORT INFORMATION
  Report Type: 
  Country: None (occurrence: None)
  Receive Date: 20070827
  Receipt Date: 20070809
  Transmission Date: 20080115
  Serious: No
  Sender: FDA-Public Use
  Company Number: PHBS2007US13584

PATIENT
  Age: 5 Year
  Sex: Male

DRUGS (1)
  1. BACLOFEN [Suspect]
     Indication: MUSCLE SPASTICITY
     Route: 037

REACTIONS (4)
  - CEREBRAL VENTRICULOGRAM ABNORMAL [None]
  - FEEDING DISORDER [None]
  - SHUNT MALFUNCTION [None]
  - SHUNT OCCLUSION [None]
